FAERS Safety Report 12416459 (Version 1)
Quarter: 2016Q2

REPORT INFORMATION
  Report Type: Spontaneous
  Country: CN (occurrence: CN)
  Receive Date: 20160530
  Receipt Date: 20160530
  Transmission Date: 20160815
  Serious: Yes (Other)
  Sender: FDA-Public Use
  Company Number: CN-JNJFOC-20140618953

PATIENT

DRUGS (3)
  1. TOPAMAX [Suspect]
     Active Substance: TOPIRAMATE
     Indication: EPILEPSY
     Dosage: DOSE WAS INCREASED ONCE A WEEK (INCREASE BY THE INITIAL DOSE EACH TIME) UNTIL 4 MG/ KG
     Route: 048
  2. TOPAMAX [Suspect]
     Active Substance: TOPIRAMATE
     Indication: EPILEPSY
     Route: 048
  3. TOPAMAX [Suspect]
     Active Substance: TOPIRAMATE
     Indication: EPILEPSY
     Dosage: 0.5 ~ 1 MG/ KG/ DAY
     Route: 048

REACTIONS (5)
  - Weight decreased [Unknown]
  - Pyrexia [Unknown]
  - Decreased appetite [Unknown]
  - Drug ineffective [Unknown]
  - Brain injury [Unknown]
